FAERS Safety Report 14777227 (Version 1)
Quarter: 2018Q2

REPORT INFORMATION
  Report Type: Spontaneous
  Country: FR (occurrence: FR)
  Receive Date: 20180419
  Receipt Date: 20180419
  Transmission Date: 20180711
  Serious: Yes (Hospitalization)
  Sender: FDA-Public Use
  Company Number: FR-MERCK KGAA-2046014

PATIENT
  Age: 46 Year
  Sex: Female

DRUGS (1)
  1. NOVOTHYROX [Suspect]
     Active Substance: LEVOTHYROXINE SODIUM
     Indication: AUTOIMMUNE THYROIDITIS
     Dates: start: 201704

REACTIONS (30)
  - Impatience [None]
  - Anger [None]
  - Decreased interest [None]
  - Pain in extremity [Recovering/Resolving]
  - Irritability [None]
  - Loss of personal independence in daily activities [None]
  - Insomnia [None]
  - Frustration tolerance decreased [None]
  - Headache [None]
  - Fatigue [None]
  - Impaired work ability [None]
  - Gait disturbance [Recovered/Resolved]
  - Libido disorder [None]
  - Low income [None]
  - Sciatica [Recovering/Resolving]
  - Poor quality sleep [None]
  - Nervousness [None]
  - Crying [None]
  - Impaired driving ability [None]
  - Musculoskeletal pain [Recovering/Resolving]
  - Hypokinesia [Recovered/Resolved]
  - Depressed mood [None]
  - Blood chloride decreased [None]
  - Paraesthesia [Recovering/Resolving]
  - Sleep disorder [None]
  - Back pain [Recovering/Resolving]
  - Pain [Recovering/Resolving]
  - Hyperaesthesia [Recovering/Resolving]
  - Abdominal pain upper [None]
  - Anxiety [None]

NARRATIVE: CASE EVENT DATE: 2017
